FAERS Safety Report 5886069-6 (Version None)
Quarter: 2008Q3

REPORT INFORMATION
  Report Type: 
  Country: None (occurrence: None)
  Receive Date: 20080917
  Receipt Date: 20080905
  Transmission Date: 20090109
  Serious: Yes (Hospitalization, Disabling)
  Sender: FDA-Public Use
  Company Number: CN-ROCHE-585171

PATIENT
  Sex: Female

DRUGS (4)
  1. MYCOPHENOLATE MOFETIL [Suspect]
     Indication: RENAL TRANSPLANT
     Dosage: DOSE BLINDED.
     Route: 048
     Dates: start: 20050428, end: 20050622
  2. ERL080A [Suspect]
     Indication: RENAL TRANSPLANT
     Dosage: DRUG WAS REPORTED AS BLINDED.
     Route: 048
     Dates: start: 20050428, end: 20050622
  3. NEORAL [Concomitant]
     Dosage: FREQUENCY REPORTED AS: ^Q12H^
     Route: 048
  4. PREDNISONE TAB [Concomitant]
     Route: 048

REACTIONS (4)
  - GRAFT LOSS [None]
  - IMPLANT TISSUE NECROSIS [None]
  - NEPHRECTOMY [None]
  - TRANSPLANT REJECTION [None]
